FAERS Safety Report 23727933 (Version 1)
Quarter: 2024Q2

REPORT INFORMATION
  Report Type: Spontaneous
  Country: IT (occurrence: None)
  Receive Date: 20240410
  Receipt Date: 20240410
  Transmission Date: 20240715
  Serious: Yes (Hospitalization)
  Sender: FDA-Public Use
  Company Number: 2024A078686

PATIENT
  Age: 14 Year
  Sex: Male
  Weight: 53 kg

DRUGS (1)
  1. SELUMETINIB [Suspect]
     Active Substance: SELUMETINIB
     Dosage: 40 MG TWICE DAILY
     Route: 048
     Dates: start: 20220526

REACTIONS (1)
  - Cerebellar cyst [Recovering/Resolving]

NARRATIVE: CASE EVENT DATE: 20240321
